FAERS Safety Report 12417328 (Version 1)
Quarter: 2016Q2

REPORT INFORMATION
  Report Type: Spontaneous
  Country: GB (occurrence: GB)
  Receive Date: 20160530
  Receipt Date: 20160530
  Transmission Date: 20160815
  Serious: Yes (Other)
  Sender: FDA-Public Use
  Company Number: GB-JNJFOC-20150617952

PATIENT
  Sex: Male

DRUGS (2)
  1. SIMPONI [Suspect]
     Active Substance: GOLIMUMAB
     Indication: PRODUCT USED FOR UNKNOWN INDICATION
     Route: 058
     Dates: start: 20150526
  2. SIMPONI [Suspect]
     Active Substance: GOLIMUMAB
     Indication: PRODUCT USED FOR UNKNOWN INDICATION
     Route: 058
     Dates: start: 20150616

REACTIONS (9)
  - Inappropriate schedule of drug administration [Unknown]
  - Asthma [Recovering/Resolving]
  - Lower respiratory tract infection [Unknown]
  - Musculoskeletal stiffness [Recovering/Resolving]
  - Drug effect decreased [Unknown]
  - Skin discolouration [Unknown]
  - Pain [Recovering/Resolving]
  - Blood cholesterol increased [Unknown]
  - Depression [Unknown]

NARRATIVE: CASE EVENT DATE: 2015
